FAERS Safety Report 6064478-2 (Version None)
Quarter: 2009Q1

REPORT INFORMATION
  Report Type: 
  Country: None (occurrence: None)
  Receive Date: 20090204
  Receipt Date: 20090122
  Transmission Date: 20090719
  Serious: Yes (Death, Hospitalization)
  Sender: FDA-Public Use
  Company Number: DE-CELGENEUS-062-21880-09011248

PATIENT
  Sex: Male
  Weight: 73 kg

DRUGS (12)
  1. REVLIMID [Suspect]
     Indication: PLASMACYTOMA
     Route: 048
     Dates: start: 20081105, end: 20081128
  2. REVLIMID [Suspect]
     Route: 048
     Dates: start: 20081211, end: 20081231
  3. DEXAMETHASONE [Suspect]
     Indication: PLASMACYTOMA
     Route: 048
  4. CLEXANE [Suspect]
     Indication: DRUG USE FOR UNKNOWN INDICATION
     Dosage: 2X0.6 ML
     Route: 058
  5. SAROTEN [Suspect]
     Indication: DRUG USE FOR UNKNOWN INDICATION
     Route: 065
  6. MST [Suspect]
     Indication: DRUG USE FOR UNKNOWN INDICATION
     Route: 065
  7. METHOHEXAL [Concomitant]
     Indication: DRUG USE FOR UNKNOWN INDICATION
     Route: 065
  8. PANTOZOL [Concomitant]
     Indication: DRUG USE FOR UNKNOWN INDICATION
     Route: 065
  9. RAMIPRIL [Concomitant]
     Indication: HYPERTENSION
     Route: 065
  10. NOVAMINSULFON [Concomitant]
     Indication: DRUG USE FOR UNKNOWN INDICATION
     Route: 065
  11. NULYTELY [Concomitant]
     Indication: DRUG USE FOR UNKNOWN INDICATION
     Route: 048
  12. BELOC ZOK [Concomitant]
     Indication: DRUG USE FOR UNKNOWN INDICATION
     Route: 065

REACTIONS (4)
  - CARDIAC FAILURE [None]
  - DEEP VEIN THROMBOSIS [None]
  - ENCEPHALITIS [None]
  - PULMONARY EMBOLISM [None]
